FAERS Safety Report 4983702-8 (Version None)
Quarter: 2006Q2

REPORT INFORMATION
  Report Type: 
  Country: None (occurrence: None)
  Receive Date: 20060425
  Receipt Date: 20060425
  Transmission Date: 20061013
  Serious: Yes (Other)
  Sender: FDA-Public Use
  Company Number: None

PATIENT
  Sex: Female
  Weight: 141.9759 kg

DRUGS (3)
  1. FLUOXETINE [Suspect]
     Indication: INTERMITTENT EXPLOSIVE DISORDER
     Dosage: FLUOXETINE, 20MG, PO, QD;  FLUOXETINE, 40MG, PO, QD
     Route: 048
     Dates: start: 20060303, end: 20060330
  2. FLUOXETINE [Suspect]
     Indication: INTERMITTENT EXPLOSIVE DISORDER
     Dosage: FLUOXETINE, 20MG, PO, QD;  FLUOXETINE, 40MG, PO, QD
     Route: 048
     Dates: start: 20060330, end: 20060406
  3. FLUOXETINE [Suspect]
     Indication: INTERMITTENT EXPLOSIVE DISORDER
     Dosage: FLUOXETINE, 20MG, PO, QD;  FLUOXETINE, 40MG, PO, QD
     Route: 048
     Dates: start: 20060412, end: 20060413

REACTIONS (5)
  - ALCOHOL USE [None]
  - BLOOD AMYLASE INCREASED [None]
  - HAEMATOCRIT DECREASED [None]
  - HAEMOGLOBIN DECREASED [None]
  - PANCREATITIS CHRONIC [None]
